FAERS Safety Report 15010346 (Version 1)
Quarter: 2018Q2

REPORT INFORMATION
  Report Type: Spontaneous
  Country: US (occurrence: US)
  Receive Date: 20180528
  Receipt Date: 20180528
  Transmission Date: 20180711
  Serious: Yes (Life-Threatening, Disabling)
  Sender: FDA-Public Use
  Company Number: None

PATIENT
  Age: 50 Year
  Sex: Male
  Weight: 94.5 kg

DRUGS (6)
  1. MULTIVITAMIN [Concomitant]
     Active Substance: VITAMINS
  2. PROBIOTIC [Concomitant]
     Active Substance: PROBIOTICS NOS
  3. MAGNESIUM GLYCENATE [Concomitant]
  4. OMEGA3 [Concomitant]
  5. EPSOM SALT [Concomitant]
     Active Substance: MAGNESIUM SULFATE
  6. CIPROFLOXACN [Suspect]
     Active Substance: CIPROFLOXACIN
     Indication: DIVERTICULITIS
     Dosage: ?          QUANTITY:2 TABLET(S);?
     Route: 048
     Dates: start: 20170508, end: 20170511

REACTIONS (17)
  - Grip strength decreased [None]
  - Dysstasia [None]
  - Panic reaction [None]
  - Suicidal ideation [None]
  - Impaired work ability [None]
  - Fear [None]
  - Apparent death [None]
  - Arthropathy [None]
  - Feeling abnormal [None]
  - Anxiety [None]
  - Crying [None]
  - Palpitations [None]
  - Arthralgia [None]
  - Insomnia [None]
  - Joint noise [None]
  - Cognitive disorder [None]
  - Asthenia [None]

NARRATIVE: CASE EVENT DATE: 20180505
